FAERS Safety Report 21618913 (Version 1)
Quarter: 2022Q4

REPORT INFORMATION
  Report Type: Other
  Country: US (occurrence: US)
  Receive Date: 20221120
  Receipt Date: 20221120
  Transmission Date: 20230113
  Serious: Yes (Hospitalization)
  Sender: FDA-Public Use
  Company Number: US-GBT-017924

PATIENT
  Sex: Female

DRUGS (1)
  1. OXBRYTA [Suspect]
     Active Substance: VOXELOTOR
     Indication: Product used for unknown indication

REACTIONS (3)
  - Sickle cell anaemia with crisis [Unknown]
  - Dyspnoea [Unknown]
  - Abdominal discomfort [Recovered/Resolved]
